FAERS Safety Report 11099973 (Version 2)
Quarter: 2015Q2

REPORT INFORMATION
  Report Type: Spontaneous
  Country: JP (occurrence: JP)
  Receive Date: 20150508
  Receipt Date: 20150622
  Transmission Date: 20150821
  Serious: Yes (Hospitalization, Disabling)
  Sender: FDA-Public Use
  Company Number: JP-AMGEN-JPNOT2015044889

PATIENT
  Age: 73 Year
  Sex: Female
  Weight: 47 kg

DRUGS (4)
  1. PRALIA [Suspect]
     Active Substance: DENOSUMAB
     Indication: OSTEOPOROSIS
     Dosage: 60 MG, UNK
     Route: 058
     Dates: start: 20140630
  2. EBRANTIL                           /00631801/ [Concomitant]
     Active Substance: URAPIDIL
     Dosage: 15 MG, BID
     Route: 048
     Dates: start: 201408
  3. BENIDIPINE [Concomitant]
     Active Substance: BENIDIPINE
     Dosage: UNK
     Route: 048
  4. BAYASPIRIN [Concomitant]
     Active Substance: ASPIRIN
     Dosage: UNK
     Route: 048

REACTIONS (2)
  - Herpes zoster [Recovered/Resolved with Sequelae]
  - Influenza [Recovered/Resolved with Sequelae]

NARRATIVE: CASE EVENT DATE: 20140811
